FAERS Safety Report 4550891-9 (Version None)
Quarter: 2004Q4

REPORT INFORMATION
  Report Type: 
  Country: None (occurrence: None)
  Receive Date: 20041217
  Receipt Date: 20040910
  Transmission Date: 20050328
  Serious: No
  Sender: FDA-Public Use
  Company Number: 2004-BP-08222BP(0)

PATIENT
  Sex: Female

DRUGS (6)
  1. SPIRIVA [Suspect]
     Indication: CHRONIC OBSTRUCTIVE AIRWAYS DISEASE
     Dosage: 18 MCG (18 MCG, 1 IN 1 D), IH
     Route: 055
     Dates: start: 20040902
  2. FLOVENT [Concomitant]
  3. SINGULARI [Concomitant]
  4. PROVENTIL (SALBUTAMOL SULFATE) [Concomitant]
  5. DARVOCET [Concomitant]
  6. DURAGESIC [Concomitant]

REACTIONS (2)
  - FATIGUE [None]
  - HOARSENESS [None]
